FAERS Safety Report 4979958-8 (Version None)
Quarter: 2006Q2

REPORT INFORMATION
  Report Type: 
  Country: None (occurrence: None)
  Receive Date: 20060421
  Receipt Date: 20051130
  Transmission Date: 20061013
  Serious: Yes (Hospitalization)
  Sender: FDA-Public Use
  Company Number: US-MERCK-0512USA00267

PATIENT
  Age: 63 Year
  Sex: Female
  Weight: 57 kg

DRUGS (2)
  1. VIOXX [Suspect]
     Indication: EXERCISE ADEQUATE
     Route: 048
  2. VIOXX [Suspect]
     Indication: MUSCULOSKELETAL DISORDER
     Route: 048

REACTIONS (9)
  - BACK PAIN [None]
  - CARDIAC DISORDER [None]
  - CEREBROVASCULAR ACCIDENT [None]
  - CHEST PAIN [None]
  - DISORIENTATION [None]
  - DIZZINESS [None]
  - DYSPNOEA [None]
  - FALL [None]
  - PAIN IN EXTREMITY [None]
